FAERS Safety Report 9510629 (Version 1)
Quarter: 2013Q3

REPORT INFORMATION
  Report Type: Report from Study
  Country: US (occurrence: US)
  Receive Date: 20130909
  Receipt Date: 20130909
  Transmission Date: 20140515
  Serious: Yes (Hospitalization)
  Sender: FDA-Public Use
  Company Number: US-ABBOTT-13P-163-1143081-00

PATIENT
  Sex: Male

DRUGS (2)
  1. HUMIRA [Suspect]
     Indication: CROHN^S DISEASE
     Dates: end: 2012
  2. HUMIRA [Suspect]
     Dates: start: 2013

REACTIONS (2)
  - Colectomy [Recovered/Resolved]
  - Crohn^s disease [Not Recovered/Not Resolved]
